FAERS Safety Report 5630723-8 (Version None)
Quarter: 2008Q1

REPORT INFORMATION
  Report Type: 
  Country: None (occurrence: None)
  Receive Date: 20080219
  Receipt Date: 20080206
  Transmission Date: 20080703
  Serious: Yes (Death, Hospitalization)
  Sender: FDA-Public Use
  Company Number: US-JNJFOC-20071204507

PATIENT
  Sex: Female
  Weight: 73.03 kg

DRUGS (1)
  1. ORTHO EVRA [Suspect]
     Indication: CONTRACEPTION
     Route: 062
     Dates: end: 20060116

REACTIONS (2)
  - CEREBRAL HAEMORRHAGE [None]
  - DEEP VEIN THROMBOSIS [None]
